FAERS Safety Report 4622763-2 (Version None)
Quarter: 2005Q1

REPORT INFORMATION
  Report Type: 
  Country: None (occurrence: None)
  Receive Date: 20050330
  Receipt Date: 20050216
  Transmission Date: 20050727
  Serious: Yes (Hospitalization)
  Sender: FDA-Public Use
  Company Number: US-BRISTOL-MYERS SQUIBB COMPANY-12865572

PATIENT
  Age: 82 Year
  Sex: Male
  Weight: 70 kg

DRUGS (14)
  1. CARBOPLATIN [Suspect]
     Indication: BLADDER CANCER
     Route: 042
     Dates: start: 20041108, end: 20041108
  2. PACLITAXEL [Suspect]
     Indication: BLADDER CANCER
     Route: 042
     Dates: start: 20041108, end: 20041108
  3. GEMCITABINE [Suspect]
     Indication: BLADDER CANCER
     Route: 042
     Dates: start: 20041108, end: 20041115
  4. GRANISETRON [Concomitant]
  5. DEXAMETHASONE [Concomitant]
  6. DIPHENHYDRAMINE [Concomitant]
  7. FAMOTIDINE [Concomitant]
  8. ATENOLOL [Concomitant]
  9. PRINIVIL [Concomitant]
  10. COMPAZINE [Concomitant]
  11. MEGACE [Concomitant]
  12. COLACE [Concomitant]
  13. VICODIN [Concomitant]
  14. ZOLOFT [Concomitant]

REACTIONS (7)
  - ACUTE PSYCHOSIS [None]
  - CHEST WALL ABSCESS [None]
  - LEUKOPENIA [None]
  - SEPSIS [None]
  - THROMBOCYTOPENIA [None]
  - URINARY TRACT INFECTION [None]
  - URINARY TRACT OBSTRUCTION [None]
